FAERS Safety Report 5012167-5 (Version None)
Quarter: 2006Q2

REPORT INFORMATION
  Report Type: 
  Country: None (occurrence: None)
  Receive Date: 20060526
  Receipt Date: 20060519
  Transmission Date: 20061013
  Serious: Yes (Hospitalization)
  Sender: FDA-Public Use
  Company Number: US-ABBOTT-06P-163-0334013-00

PATIENT
  Sex: Female

DRUGS (1)
  1. SYNTHROID [Suspect]
     Indication: DRUG USE FOR UNKNOWN INDICATION
     Route: 048
     Dates: start: 20020101

REACTIONS (6)
  - ASTHENIA [None]
  - INFECTION [None]
  - OSTEOPOROSIS [None]
  - PAIN [None]
  - SPINAL COMPRESSION FRACTURE [None]
  - WEIGHT DECREASED [None]
